FAERS Safety Report 9325218 (Version 3)
Quarter: 2014Q2

REPORT INFORMATION
  Report Type: Report from Study
  Country: CA (occurrence: CA)
  Receive Date: 20130604
  Receipt Date: 20140408
  Transmission Date: 20141212
  Serious: Yes (Hospitalization, Other)
  Sender: FDA-Public Use
  Company Number: CA-ROCHE-1231729

PATIENT
  Sex: Female
  Weight: 74.4 kg

DRUGS (12)
  1. RITUXAN [Suspect]
     Indication: RHEUMATOID ARTHRITIS
     Dosage: DAY 1 AND DAY 15??DAE OF THE LAST DOSE OF RITUXIMAB PRIOR TO THE ADVERSE EVENT: 06/JUN/2012
     Route: 042
     Dates: start: 20100212
  2. RITUXAN [Suspect]
     Route: 042
     Dates: start: 20130625
  3. METHOTREXATE [Suspect]
     Indication: PRODUCT USED FOR UNKNOWN INDICATION
     Route: 065
     Dates: end: 201307
  4. FOLIC ACID [Suspect]
     Indication: PRODUCT USED FOR UNKNOWN INDICATION
     Route: 065
     Dates: end: 201307
  5. DIPHENHYDRAMINE HCL [Concomitant]
     Indication: PREMEDICATION
     Route: 048
     Dates: start: 20110615
  6. ACETAMINOPHEN [Concomitant]
     Indication: PREMEDICATION
     Route: 048
     Dates: start: 20110615
  7. METHYLPREDNISOLONE [Concomitant]
     Indication: PREMEDICATION
     Route: 042
     Dates: start: 20110615
  8. PANTOLOC [Concomitant]
     Route: 065
     Dates: end: 201308
  9. VITAMIN B COMPLEX [Concomitant]
  10. OXYCODONE [Concomitant]
     Dosage: AS REQUIRED
     Route: 065
  11. CELEBREX [Concomitant]
  12. PREDNISONE [Concomitant]
     Route: 065
     Dates: start: 20130516

REACTIONS (7)
  - Bone disorder [Recovering/Resolving]
  - Rheumatoid arthritis [Not Recovered/Not Resolved]
  - Pain [Not Recovered/Not Resolved]
  - Gastric disorder [Unknown]
  - Stomatitis [Unknown]
  - Fall [Unknown]
  - Lower limb fracture [Unknown]
